FAERS Safety Report 24193269 (Version 2)
Quarter: 2024Q4

REPORT INFORMATION
  Report Type: Spontaneous
  Country: JP (occurrence: JP)
  Receive Date: 20240809
  Receipt Date: 20241024
  Transmission Date: 20250115
  Serious: Yes (Life-Threatening, Disabling)
  Sender: ROCHE
  Company Number: JP-CHUGAI-2024026798AA

PATIENT
  Age: 7 Decade
  Sex: Male
  Weight: 73.6 kg

DRUGS (9)
  1. POLIVY [Suspect]
     Active Substance: POLATUZUMAB VEDOTIN-PIIQ
     Indication: Diffuse large B-cell lymphoma
     Dosage: 1.8 MILLIGRAM/KILOGRAM, ONCE/3WEEKS
     Route: 042
     Dates: start: 20240403, end: 20240605
  2. RITUXIMAB [Concomitant]
     Active Substance: RITUXIMAB
     Indication: Diffuse large B-cell lymphoma
     Dosage: UNK
     Route: 042
     Dates: start: 20240403, end: 20240626
  3. CYCLOPHOSPHAMIDE [Concomitant]
     Active Substance: CYCLOPHOSPHAMIDE
     Indication: Diffuse large B-cell lymphoma
     Dosage: UNK
     Route: 042
     Dates: start: 20240404, end: 20240627
  4. ADRIACIN [Concomitant]
     Active Substance: DOXORUBICIN HYDROCHLORIDE
     Indication: Diffuse large B-cell lymphoma
     Dosage: UNK
     Route: 042
     Dates: start: 20240425, end: 20240627
  5. PREDNISOLONE [Concomitant]
     Active Substance: PREDNISOLONE
     Indication: Diffuse large B-cell lymphoma
     Dosage: UNK
     Route: 050
     Dates: start: 20240404, end: 20240627
  6. PREDNISOLONE [Concomitant]
     Active Substance: PREDNISOLONE
     Dosage: UNK
     Route: 050
     Dates: start: 20240712, end: 20240712
  7. METHOTREXATE [Concomitant]
     Active Substance: METHOTREXATE
     Dosage: UNK
     Route: 028
     Dates: start: 20240712, end: 20240712
  8. PINORUBIN [PIRARUBICIN HYDROCHLORIDE] [Concomitant]
     Indication: Diffuse large B-cell lymphoma
     Dosage: UNK
     Dates: start: 20240404, end: 20240404
  9. CYTARABINE [Concomitant]
     Active Substance: CYTARABINE
     Route: 028
     Dates: start: 20240712, end: 20240712

REACTIONS (2)
  - Nervous system disorder [Recovered/Resolved]
  - Orthostatic hypotension [Unknown]

NARRATIVE: CASE EVENT DATE: 20240614
